FAERS Safety Report 17347289 (Version 2)
Quarter: 2020Q1

REPORT INFORMATION
  Report Type: Spontaneous
  Country: US (occurrence: US)
  Receive Date: 20200130
  Receipt Date: 20200204
  Transmission Date: 20200409
  Serious: No
  Sender: FDA-Public Use
  Company Number: US-JNJFOC-20200133740

PATIENT
  Age: 75 Year
  Sex: Female
  Weight: 55.84 kg

DRUGS (1)
  1. XARELTO [Suspect]
     Active Substance: RIVAROXABAN
     Indication: THROMBOSIS
     Route: 048
     Dates: start: 20180711, end: 20200116

REACTIONS (5)
  - Crying [Recovered/Resolved]
  - Thinking abnormal [Not Recovered/Not Resolved]
  - Nervousness [Recovered/Resolved]
  - Therapeutic product effect decreased [Unknown]
  - Panic attack [Recovered/Resolved]

NARRATIVE: CASE EVENT DATE: 2019
